FAERS Safety Report 8245883-2 (Version None)
Quarter: 2012Q1

REPORT INFORMATION
  Report Type: 
  Country: None (occurrence: None)
  Receive Date: 20120328
  Receipt Date: 20120328
  Transmission Date: 20120608
  Serious: Yes (Other)
  Sender: FDA-Public Use
  Company Number: None

PATIENT
  Weight: 67.1324 kg

DRUGS (1)
  1. PROLIA [Suspect]
     Indication: OSTEOPOROSIS
     Dosage: 1 X Q 6 MONTHS SUBCU
     Route: 058
     Dates: start: 20110301, end: 20110901

REACTIONS (8)
  - PAIN IN JAW [None]
  - HEADACHE [None]
  - CACHEXIA [None]
  - TRISMUS [None]
  - GINGIVAL PAIN [None]
  - TOOTHACHE [None]
  - PARAESTHESIA [None]
  - DYSKINESIA [None]
